FAERS Safety Report 13533899 (Version 2)
Quarter: 2017Q3

REPORT INFORMATION
  Report Type: Spontaneous
  Country: US (occurrence: US)
  Receive Date: 20170510
  Receipt Date: 20170808
  Transmission Date: 20171127
  Serious: No
  Sender: FDA-Public Use
  Company Number: US-SA-2017SA070986

PATIENT
  Age: 41 Year
  Sex: Female
  Weight: 72 kg

DRUGS (6)
  1. ACYCLOVIR. [Concomitant]
     Active Substance: ACYCLOVIR
     Indication: PYREXIA
     Route: 065
     Dates: start: 2015
  2. ACYCLOVIR. [Concomitant]
     Active Substance: ACYCLOVIR
     Indication: BLISTER
     Route: 065
     Dates: start: 2015
  3. XYZAL ALLERGY 24HR [Suspect]
     Active Substance: LEVOCETIRIZINE DIHYDROCHLORIDE
     Indication: MULTIPLE ALLERGIES
     Route: 065
     Dates: start: 20170412, end: 20170419
  4. SONATA [Concomitant]
     Active Substance: ZALEPLON
     Indication: INSOMNIA
     Route: 065
     Dates: start: 201604
  5. ACYCLOVIR. [Concomitant]
     Active Substance: ACYCLOVIR
     Indication: ORAL HERPES
     Route: 065
     Dates: start: 2015
  6. TRINESSA [Concomitant]
     Active Substance: ETHINYL ESTRADIOL\NORGESTIMATE
     Indication: HORMONE THERAPY
     Route: 065
     Dates: start: 201702

REACTIONS (1)
  - Blister [Recovered/Resolved]

NARRATIVE: CASE EVENT DATE: 20170416
